FAERS Safety Report 25714013 (Version 1)
Quarter: 2025Q3

REPORT INFORMATION
  Report Type: Spontaneous
  Country: RU (occurrence: RU)
  Receive Date: 20250822
  Receipt Date: 20250822
  Transmission Date: 20251020
  Serious: Yes (Death, Other)
  Sender: ROCHE
  Company Number: RU-ROCHE-10000368491

PATIENT
  Sex: Female

DRUGS (4)
  1. ZELBORAF [Suspect]
     Active Substance: VEMURAFENIB
     Indication: Product used for unknown indication
     Route: 065
     Dates: start: 202502
  2. COTELLIC [Suspect]
     Active Substance: COBIMETINIB FUMARATE
     Indication: Product used for unknown indication
     Route: 065
     Dates: start: 202502
  3. TECENTRIQ [Suspect]
     Active Substance: ATEZOLIZUMAB
     Indication: Product used for unknown indication
     Route: 065
     Dates: start: 202502
  4. PROLGOLIMAB [Concomitant]
     Active Substance: PROLGOLIMAB

REACTIONS (4)
  - Death [Fatal]
  - Metastases to soft tissue [Unknown]
  - Cerebral disorder [Unknown]
  - Metastases to meninges [Unknown]
